FAERS Safety Report 8975876 (Version 1)
Quarter: 2012Q4

REPORT INFORMATION
  Report Type: 
  Country: US (occurrence: US)
  Receive Date: 20121219
  Receipt Date: 20121219
  Transmission Date: 20130627
  Serious: No
  Sender: FDA-Public Use
  Company Number: US-MYLANLABS-2012S1006161

PATIENT
  Age: 32 Year
  Sex: Male

DRUGS (3)
  1. CITALOPRAM HYDROBROMIDE [Suspect]
     Indication: ABNORMAL BEHAVIOUR
     Route: 048
  2. TEGRETOL [Concomitant]
     Indication: CONVULSION
  3. KEPPRA [Concomitant]
     Indication: CONVULSION

REACTIONS (2)
  - Drug ineffective for unapproved indication [Not Recovered/Not Resolved]
  - Aggression [Not Recovered/Not Resolved]
